FAERS Safety Report 9269975 (Version 3)
Quarter: 2013Q2

REPORT INFORMATION
  Report Type: Report from Study
  Country: KR (occurrence: KR)
  Receive Date: 20130503
  Receipt Date: 20130618
  Transmission Date: 20140414
  Serious: Yes (Hospitalization)
  Sender: FDA-Public Use
  Company Number: KR-AMGEN-KORCT2013030596

PATIENT
  Age: 64 Year
  Sex: Male

DRUGS (10)
  1. DARBEPOETIN ALFA [Suspect]
     Indication: NEPHROGENIC ANAEMIA
     Dosage: 30 MUG, QWK
     Route: 042
     Dates: start: 20100719, end: 201204
  2. DARBEPOETIN ALFA [Suspect]
     Dosage: 60 MUG, QWK
     Route: 042
     Dates: start: 201207
  3. EPOETIN ALFA [Suspect]
     Indication: ANAEMIA
     Dosage: UNK UNK, 3 TIMES/WK
     Route: 042
     Dates: start: 201204
  4. FEROBA [Concomitant]
     Dosage: UNK
     Route: 065
  5. ATACAND [Concomitant]
     Dosage: 16 MG, UNK
     Route: 065
  6. NORVASC [Concomitant]
     Dosage: 5 MG, UNK
     Route: 065
  7. CONCOR [Concomitant]
     Dosage: 2.5 MG, UNK
  8. RENALMIN [Concomitant]
     Route: 065
  9. LASIX [Concomitant]
     Dosage: 40 MG, UNK
     Route: 065
  10. PANTOLOC [Concomitant]
     Dosage: 20 MG, UNK
     Route: 065

REACTIONS (1)
  - Myelodysplastic syndrome [Unknown]
